FAERS Safety Report 11143551 (Version 1)
Quarter: 2015Q2

REPORT INFORMATION
  Report Type: Spontaneous
  Country: US (occurrence: US)
  Receive Date: 20150528
  Receipt Date: 20150528
  Transmission Date: 20150821
  Serious: No
  Sender: FDA-Public Use
  Company Number: US-009507513-1505USA000541

PATIENT
  Age: 23 Year
  Sex: Female
  Weight: 54.42 kg

DRUGS (1)
  1. IMPLANON [Suspect]
     Active Substance: ETONOGESTREL
     Indication: CONTRACEPTION
     Dosage: 68 MG EVERY 3 YEARS
     Route: 059
     Dates: start: 20111122

REACTIONS (11)
  - Muscle spasms [Not Recovered/Not Resolved]
  - Dysmenorrhoea [Not Recovered/Not Resolved]
  - Weight increased [Not Recovered/Not Resolved]
  - Endometriosis [Not Recovered/Not Resolved]
  - Mood swings [Not Recovered/Not Resolved]
  - Pain [Not Recovered/Not Resolved]
  - Menstruation irregular [Not Recovered/Not Resolved]
  - Menorrhagia [Not Recovered/Not Resolved]
  - Incorrect drug administration duration [Unknown]
  - Acne [Not Recovered/Not Resolved]
  - Vomiting [Not Recovered/Not Resolved]

NARRATIVE: CASE EVENT DATE: 2013
